FAERS Safety Report 24530435 (Version 1)
Quarter: 2024Q4

REPORT INFORMATION
  Report Type: Spontaneous
  Country: CH (occurrence: CH)
  Receive Date: 20241021
  Receipt Date: 20241021
  Transmission Date: 20250114
  Serious: Yes (Hospitalization, Other)
  Sender: TEVA
  Company Number: None

PATIENT
  Age: 74 Year
  Sex: Male
  Weight: 89.3 kg

DRUGS (31)
  1. PREGABALIN [Interacting]
     Active Substance: PREGABALIN
     Indication: Product used for unknown indication
     Dosage: PREGABALIN MEPHA
     Route: 048
     Dates: start: 20240314
  2. OXYCODONE HYDROCHLORIDE [Concomitant]
     Active Substance: OXYCODONE HYDROCHLORIDE
     Indication: Pain
     Dosage: TIME INTERVAL: AS NECESSARY: MAX. 4X/DAY
     Route: 048
  3. QUETIAPINE [Interacting]
     Active Substance: QUETIAPINE
     Indication: Restlessness
     Dosage: QUETIAPINE MEPHA
     Route: 048
     Dates: start: 20240503
  4. QUETIAPINE [Interacting]
     Active Substance: QUETIAPINE
     Indication: Restlessness
     Dosage: TIME INTERVAL: AS NECESSARY: MAX. 6X/DAY
     Route: 048
  5. PANTOPRAZOLE SODIUM [Concomitant]
     Active Substance: PANTOPRAZOLE SODIUM
     Indication: Product used for unknown indication
     Route: 048
     Dates: start: 20190226
  6. TORSEMIDE [Interacting]
     Active Substance: TORSEMIDE
     Indication: Product used for unknown indication
     Dosage: TORASEMID MEPHA
     Route: 048
     Dates: start: 20240604
  7. ACETAMINOPHEN [Concomitant]
     Active Substance: ACETAMINOPHEN
     Indication: Product used for unknown indication
     Route: 048
     Dates: start: 20240316
  8. BRINTELLIX [Concomitant]
     Active Substance: VORTIOXETINE HYDROBROMIDE
     Indication: Product used for unknown indication
     Route: 048
     Dates: start: 20240527
  9. LEVOCETIRIZIN MEPHA [Concomitant]
     Indication: Arthropod sting
     Dosage: TIME INTERVAL: AS NECESSARY: MAX. 2X/DAY
     Route: 048
  10. SPIRIVA [Concomitant]
     Active Substance: TIOTROPIUM BROMIDE MONOHYDRATE
     Indication: Product used for unknown indication
     Dosage: 2.5 MCG TIOTROPIUM PER SPRAY SHOT
     Route: 055
     Dates: start: 20230713
  11. THIAMINE HYDROCHLORIDE [Concomitant]
     Active Substance: THIAMINE HYDROCHLORIDE
     Indication: Product used for unknown indication
     Route: 048
     Dates: start: 20240316
  12. DOMPERIDONE [Concomitant]
     Active Substance: DOMPERIDONE
     Indication: Nausea
     Dosage: TIME INTERVAL: AS NECESSARY: MAX. 1X/DAY
     Route: 048
  13. Lacri vision [Concomitant]
     Indication: Product used for unknown indication
     Dosage: TIME INTERVAL: AS NECESSARY
     Route: 047
  14. ATROVENT [Concomitant]
     Active Substance: IPRATROPIUM BROMIDE
     Indication: Product used for unknown indication
     Route: 055
     Dates: start: 20230609
  15. RINOSEDIN [Concomitant]
     Indication: Nasal congestion
     Dosage: TIME INTERVAL: AS NECESSARY: FOR MAX. 7 DAYS
     Route: 045
  16. DICLOFENAC SODIUM [Concomitant]
     Active Substance: DICLOFENAC SODIUM
     Indication: Arthralgia
     Dosage: TIME INTERVAL: AS NECESSARY: MAX. 1X/DAY
     Route: 003
  17. NITROGLYCERIN [Concomitant]
     Active Substance: NITROGLYCERIN
     Indication: Angina pectoris
     Dosage: TIME INTERVAL: AS NECESSARY: MAX. 1X/DAY
     Route: 048
  18. PREDNISONE [Concomitant]
     Active Substance: PREDNISONE
     Indication: Arthropod sting
     Dosage: TIME INTERVAL: AS NECESSARY: MAX. 2X/DAY
     Route: 048
  19. LITHIUM [Interacting]
     Active Substance: LITHIUM
     Indication: Product used for unknown indication
     Dosage: 12.2 MMOL X 2
     Route: 048
     Dates: start: 2017, end: 20240605
  20. Novalgin [Concomitant]
     Indication: Pain
     Dosage: TIME INTERVAL: AS NECESSARY: MAX. 6X/DAY
     Route: 048
  21. NIZORAL [Concomitant]
     Active Substance: KETOCONAZOLE
     Indication: Product used for unknown indication
     Dosage: 20 MG KETOCONAZOLE PER GRAM
     Route: 003
     Dates: start: 20201215
  22. ALDACTONE [Interacting]
     Active Substance: SPIRONOLACTONE
     Indication: Product used for unknown indication
     Route: 048
     Dates: start: 20231124
  23. ATORVASTATIN [Concomitant]
     Active Substance: ATORVASTATIN
     Indication: Product used for unknown indication
     Route: 048
     Dates: start: 20191130
  24. Makatussin [Concomitant]
     Indication: Cough
     Dosage: TIME INTERVAL: AS NECESSARY: MAX. 30 DROPS/DAY
     Route: 048
  25. SODIUM PICOSULFATE [Concomitant]
     Active Substance: SODIUM PICOSULFATE
     Indication: Constipation
     Dosage: TIME INTERVAL: AS NECESSARY: MAX. 20 DROPS/DAY
     Route: 048
  26. XANAX [Concomitant]
     Active Substance: ALPRAZOLAM
     Indication: Anxiety
     Dosage: TIME INTERVAL: AS NECESSARY
     Route: 065
  27. VENTOLIN [Concomitant]
     Active Substance: ALBUTEROL SULFATE
     Indication: Dyspnoea
     Dosage: TIME INTERVAL: AS NECESSARY: MAX. 3X/DAY
     Route: 055
  28. VENTOLIN [Concomitant]
     Active Substance: ALBUTEROL SULFATE
     Indication: Dyspnoea
     Dosage: 5 MG SALBUTAMOL PER ML
     Route: 055
     Dates: start: 20230609
  29. CHOLECALCIFEROL [Concomitant]
     Active Substance: CHOLECALCIFEROL
     Indication: Product used for unknown indication
     Dosage: 4000 IU CHOLECALCIFEROL/ML
     Route: 065
     Dates: start: 20221122
  30. TRAZODONE HYDROCHLORIDE [Concomitant]
     Active Substance: TRAZODONE HYDROCHLORIDE
     Indication: Product used for unknown indication
     Route: 048
     Dates: start: 20220419
  31. DUTASTERIDE\TAMSULOSIN [Concomitant]
     Active Substance: DUTASTERIDE\TAMSULOSIN
     Indication: Product used for unknown indication
     Dosage: 0.5 MG DUASTERIDE/ 0.4 MG TAMSULOSIN PER TABLET
     Route: 048
     Dates: start: 20240528

REACTIONS (4)
  - Apathy [Recovering/Resolving]
  - Toxicity to various agents [Recovered/Resolved]
  - Disturbance in attention [Recovering/Resolving]
  - Tremor [Recovering/Resolving]

NARRATIVE: CASE EVENT DATE: 20240605
